FAERS Safety Report 15100903 (Version 4)
Quarter: 2023Q2

REPORT INFORMATION
  Report Type: Spontaneous
  Country: US (occurrence: US)
  Receive Date: 20180703
  Receipt Date: 20230512
  Transmission Date: 20230721
  Serious: No
  Sender: FDA-Public Use
  Company Number: US-PFIZER INC-2017474937

PATIENT
  Age: 68 Year
  Sex: Female
  Weight: 118 kg

DRUGS (3)
  1. XELJANZ XR [Suspect]
     Active Substance: TOFACITINIB CITRATE
     Indication: Arthritis
     Dosage: 11 MG, DAILY
     Route: 048
     Dates: start: 20161102, end: 20171030
  2. XELJANZ XR [Suspect]
     Active Substance: TOFACITINIB CITRATE
     Indication: Rheumatoid arthritis
  3. PROCARDIA XL [Concomitant]
     Active Substance: NIFEDIPINE
     Indication: Hypertension
     Dosage: 300 MG, 1X/DAY

REACTIONS (2)
  - Asthma [Unknown]
  - Hand deformity [Unknown]

NARRATIVE: CASE EVENT DATE: 20180601
